FAERS Safety Report 4429520-0 (Version None)
Quarter: 2004Q3

REPORT INFORMATION
  Report Type: 
  Country: None (occurrence: None)
  Receive Date: 20040816
  Receipt Date: 20040802
  Transmission Date: 20050211
  Serious: Yes (Hospitalization)
  Sender: FDA-Public Use
  Company Number: THYR-10195

PATIENT
  Age: 40 Year
  Sex: Female

DRUGS (4)
  1. THYROGEN [Suspect]
     Dosage: 0.9 MG ONCE IM
     Route: 030
     Dates: start: 20040617, end: 20040618
  2. ZANIDIP [Concomitant]
  3. LEVOTHYROXINE SODIUM [Concomitant]
  4. SEGLOR [Concomitant]

REACTIONS (9)
  - BACK PAIN [None]
  - CHEST PAIN [None]
  - COUGH [None]
  - DYSPNOEA [None]
  - HYPERVENTILATION [None]
  - HYPOCAPNIA [None]
  - HYPOXIA [None]
  - RALES [None]
  - TACHYCARDIA [None]
